FAERS Safety Report 9517424 (Version 1)
Quarter: 2013Q3

REPORT INFORMATION
  Report Type: Spontaneous
  Country: US (occurrence: US)
  Receive Date: 20130911
  Receipt Date: 20130911
  Transmission Date: 20140515
  Serious: Yes (Other)
  Sender: FDA-Public Use
  Company Number: US-SANOFI-AVENTIS-2013SA089754

PATIENT
  Sex: 0

DRUGS (1)
  1. AUBAGIO [Suspect]
     Route: 048

REACTIONS (1)
  - Multiple sclerosis relapse [Not Recovered/Not Resolved]
